FAERS Safety Report 5426199-6 (Version None)
Quarter: 2007Q3

REPORT INFORMATION
  Report Type: 
  Country: None (occurrence: None)
  Receive Date: 20070827
  Receipt Date: 20070822
  Transmission Date: 20080115
  Serious: Yes (Death, Hospitalization)
  Sender: FDA-Public Use
  Company Number: B0479683A

PATIENT
  Age: 58 Year
  Sex: Female
  Weight: 61 kg

DRUGS (6)
  1. TYKERB [Suspect]
     Indication: BREAST CANCER METASTATIC
     Dosage: 1250MG PER DAY
     Route: 048
     Dates: start: 20070531, end: 20070628
  2. XELODA [Suspect]
     Indication: BREAST CANCER METASTATIC
     Dosage: 2000MG PER DAY
     Route: 048
     Dates: start: 20070531, end: 20070628
  3. DUROGESIC [Suspect]
     Indication: PAIN
     Route: 062
     Dates: start: 20070201
  4. TOPALGIC (FRANCE) [Suspect]
     Indication: PAIN
     Dosage: 200MG PER DAY
     Route: 048
     Dates: start: 20070201
  5. ARTHROTEC [Suspect]
     Indication: PAIN
     Dosage: 1TAB PER DAY
     Route: 048
     Dates: start: 20070201
  6. DAFALGAN [Suspect]
     Indication: PAIN
     Dosage: 3G PER DAY
     Route: 048
     Dates: start: 20070201

REACTIONS (3)
  - CARDIAC TAMPONADE [None]
  - RESPIRATORY DISTRESS [None]
  - RESPIRATORY FAILURE [None]
